FAERS Safety Report 14456281 (Version 2)
Quarter: 2018Q1

REPORT INFORMATION
  Report Type: Spontaneous
  Country: US (occurrence: US)
  Receive Date: 20180130
  Receipt Date: 20180220
  Transmission Date: 20180509
  Serious: No
  Sender: FDA-Public Use
  Company Number: US-TEVA-2018-US-851338

PATIENT
  Age: 95 Year
  Sex: Female

DRUGS (2)
  1. FENTANYL. [Suspect]
     Active Substance: FENTANYL
     Route: 062
     Dates: end: 201712
  2. FENTANYL. [Suspect]
     Active Substance: FENTANYL
     Indication: FRACTURE PAIN
     Route: 062
     Dates: start: 20180117

REACTIONS (3)
  - Vomiting [Not Recovered/Not Resolved]
  - Drug ineffective [Unknown]
  - Nausea [Not Recovered/Not Resolved]

NARRATIVE: CASE EVENT DATE: 201801
